FAERS Safety Report 15060839 (Version 1)
Quarter: 2018Q2

REPORT INFORMATION
  Report Type: Spontaneous
  Country: JP (occurrence: JP)
  Receive Date: 20180625
  Receipt Date: 20180625
  Transmission Date: 20180711
  Serious: Yes (Other)
  Sender: FDA-Public Use
  Company Number: JP-PFIZER INC-2018252775

PATIENT
  Sex: Female

DRUGS (2)
  1. EBRANTIL /00631801/ [Concomitant]
     Active Substance: URAPIDIL
     Route: 048
  2. TOVIAZ [Suspect]
     Active Substance: FESOTERODINE FUMARATE
     Dosage: 4 MG, DAILY
     Route: 048

REACTIONS (1)
  - Fracture [Recovered/Resolved]
